FAERS Safety Report 9203746 (Version 1)
Quarter: 2013Q2

REPORT INFORMATION
  Report Type: Spontaneous
  Country: GB (occurrence: GB)
  Receive Date: 20130402
  Receipt Date: 20130402
  Transmission Date: 20140414
  Serious: Yes (Other)
  Sender: FDA-Public Use
  Company Number: GB-BRISTOL-MYERS SQUIBB COMPANY-18711069

PATIENT
  Age: 79 Year
  Sex: Female

DRUGS (1)
  1. MEGACE [Suspect]
     Indication: BREAST CANCER
     Route: 048

REACTIONS (4)
  - Meningioma [Unknown]
  - Decreased appetite [Unknown]
  - Nausea [Unknown]
  - Weight decreased [Unknown]
